FAERS Safety Report 7866505-6 (Version None)
Quarter: 2011Q4

REPORT INFORMATION
  Report Type: 
  Country: None (occurrence: None)
  Receive Date: 20111028
  Receipt Date: 20111026
  Transmission Date: 20120403
  Serious: Yes (Other)
  Sender: FDA-Public Use
  Company Number: US-PFIZER INC-2011142295

PATIENT
  Sex: Male

DRUGS (4)
  1. CHANTIX [Suspect]
     Indication: SMOKING CESSATION THERAPY
     Dosage: UNK
     Dates: start: 20070202, end: 20080101
  2. NORCO [Concomitant]
     Indication: PAIN MANAGEMENT
     Dosage: UNK
     Dates: start: 20060101, end: 20080101
  3. MAXALT [Concomitant]
     Indication: MIGRAINE
     Dosage: UNK
     Dates: start: 20060101
  4. CELEBREX [Concomitant]
     Indication: ARTHRITIS
     Dosage: UNK
     Dates: start: 20060101, end: 20080101

REACTIONS (6)
  - MENTAL DISORDER [None]
  - AGGRESSION [None]
  - DEPRESSION [None]
  - AMNESIA [None]
  - ANXIETY [None]
  - PSYCHOTIC BEHAVIOUR [None]
